FAERS Safety Report 11175364 (Version 6)
Quarter: 2016Q3

REPORT INFORMATION
  Report Type: Report from Study
  Country: JP (occurrence: JP)
  Receive Date: 20150609
  Receipt Date: 20160715
  Transmission Date: 20161109
  Serious: Yes (Hospitalization)
  Sender: FDA-Public Use
  Company Number: JP-ABBVIE-15K-087-1402261-00

PATIENT
  Age: 21 Year
  Sex: Female
  Weight: 48 kg

DRUGS (8)
  1. HUMIRA [Suspect]
     Active Substance: ADALIMUMAB
     Route: 058
     Dates: start: 20150514, end: 20150514
  2. VIDAZA [Suspect]
     Active Substance: AZACITIDINE
     Indication: MYELODYSPLASTIC SYNDROME
     Route: 065
     Dates: start: 20150429, end: 20150503
  3. PREDNISOLONE. [Concomitant]
     Active Substance: PREDNISOLONE
     Indication: PRODUCT USED FOR UNKNOWN INDICATION
     Dates: start: 20150317
  4. AZATHIOPRINE. [Concomitant]
     Active Substance: AZATHIOPRINE
     Indication: PRODUCT USED FOR UNKNOWN INDICATION
     Dates: start: 20150415
  5. HUMIRA [Suspect]
     Active Substance: ADALIMUMAB
     Indication: BEHCET^S SYNDROME
     Route: 058
     Dates: start: 20150430, end: 20150430
  6. COLCHICINE. [Concomitant]
     Active Substance: COLCHICINE
     Indication: PRODUCT USED FOR UNKNOWN INDICATION
  7. VIDAZA [Suspect]
     Active Substance: AZACITIDINE
     Indication: BONE MARROW FAILURE
  8. MESALAZINE [Concomitant]
     Active Substance: MESALAMINE
     Indication: PRODUCT USED FOR UNKNOWN INDICATION

REACTIONS (2)
  - Bone marrow failure [Recovering/Resolving]
  - Neutrophil count decreased [Unknown]

NARRATIVE: CASE EVENT DATE: 201505
